FAERS Safety Report 16238121 (Version 3)
Quarter: 2020Q3

REPORT INFORMATION
  Report Type: Report from Study
  Country: GB (occurrence: GB)
  Receive Date: 20190425
  Receipt Date: 20190506
  Transmission Date: 20201105
  Serious: Yes (Death, Hospitalization)
  Sender: FDA-Public Use
  Company Number: GB-PFIZER INC-2019178834

PATIENT
  Age: 21 Year
  Sex: Male
  Weight: 186 kg

DRUGS (6)
  1. TALAZOPARIB. [Suspect]
     Active Substance: TALAZOPARIB
     Indication: EWING^S SARCOMA RECURRENT
     Dosage: 1 MG, DAILY
     Route: 048
     Dates: start: 20190213, end: 20190218
  2. IRINOTECAN HCL [Suspect]
     Active Substance: IRINOTECAN HYDROCHLORIDE
     Dosage: 60 MG (33MG/M2), ONCE DAILY X 6 DAYS
     Dates: start: 20190214, end: 20190218
  3. DOXYCYCLINE. [Concomitant]
     Active Substance: DOXYCYCLINE
     Indication: ANTIBIOTIC PROPHYLAXIS
     Dosage: 100 MG, 1X/DAY
     Dates: start: 20190218
  4. CIPROFLOXACIN. [Concomitant]
     Active Substance: CIPROFLOXACIN
     Indication: ANTIBIOTIC PROPHYLAXIS
     Dosage: 250 MG, 2X/DAY
     Route: 048
     Dates: start: 20190220, end: 20190227
  5. ATROPINE. [Concomitant]
     Active Substance: ATROPINE
     Indication: DIARRHOEA
     Dosage: 250 UG, SINGLE
     Route: 058
     Dates: start: 20190218, end: 20190218
  6. COTRIMOXAZOLE [Concomitant]
     Active Substance: SULFAMETHOXAZOLE\TRIMETHOPRIM
     Indication: PROPHYLAXIS
     Dosage: 960 MG, 3 TIMES A WEEK
     Route: 048
     Dates: start: 20190218

REACTIONS (3)
  - Chest pain [Not Recovered/Not Resolved]
  - Pancytopenia [Recovered/Resolved]
  - Neoplasm progression [Fatal]

NARRATIVE: CASE EVENT DATE: 20190226
